FAERS Safety Report 23693919 (Version 1)
Quarter: 2024Q2

REPORT INFORMATION
  Report Type: Spontaneous
  Country: DE (occurrence: DE)
  Receive Date: 20240401
  Receipt Date: 20240401
  Transmission Date: 20240715
  Serious: Yes (Life-Threatening)
  Sender: FDA-Public Use
  Company Number: DE-DESITIN-2018-01780

PATIENT
  Age: 11 Month
  Sex: Male
  Weight: 6.9 kg

DRUGS (3)
  1. VALPROIC ACID [Suspect]
     Active Substance: VALPROIC ACID
     Indication: Epileptic encephalopathy
     Dosage: 360 MILLIGRAM, QD
     Route: 048
     Dates: start: 20171003, end: 20180303
  2. CLOBAZAM [Suspect]
     Active Substance: CLOBAZAM
     Indication: Epileptic encephalopathy
     Dosage: 3 MILLIGRAM, QD
     Route: 048
     Dates: start: 20170903
  3. DIACOMIT [Suspect]
     Active Substance: STIRIPENTOL
     Indication: Epileptic encephalopathy
     Dosage: 350 MILLIGRAM, QD
     Route: 048
     Dates: start: 20180114, end: 20180303

REACTIONS (3)
  - Disturbance in attention [Recovered/Resolved]
  - Liver disorder [Recovered/Resolved]
  - Liver function test increased [Recovered/Resolved]

NARRATIVE: CASE EVENT DATE: 20180301
